FAERS Safety Report 13404064 (Version 4)
Quarter: 2017Q2

REPORT INFORMATION
  Report Type: Report from Study
  Country: PE (occurrence: PE)
  Receive Date: 20170405
  Receipt Date: 20170607
  Transmission Date: 20170830
  Serious: Yes (Hospitalization)
  Sender: FDA-Public Use
  Company Number: PE-ROCHE-1913224

PATIENT
  Age: 38 Year
  Sex: Male
  Weight: 92.7 kg

DRUGS (24)
  1. FLUOXETINE [Concomitant]
     Active Substance: FLUOXETINE HYDROCHLORIDE
     Route: 065
     Dates: start: 20130105
  2. TAMSULOSIN [Concomitant]
     Active Substance: TAMSULOSIN
     Route: 065
     Dates: start: 20150128
  3. AZITHROMYCIN ANHYDROUS. [Concomitant]
     Active Substance: AZITHROMYCIN ANHYDROUS
     Route: 065
     Dates: start: 201703, end: 201703
  4. GABAPENTIN. [Concomitant]
     Active Substance: GABAPENTIN
     Route: 065
     Dates: start: 20141107, end: 20150127
  5. GABAPENTIN. [Concomitant]
     Active Substance: GABAPENTIN
     Route: 065
     Dates: start: 20150128
  6. ELCAL-D FORTE [Concomitant]
     Route: 065
     Dates: start: 20121129, end: 20131003
  7. ELCAL-D FORTE [Concomitant]
     Route: 065
     Dates: start: 20140617
  8. CEFTRIAXONE. [Concomitant]
     Active Substance: CEFTRIAXONE
     Route: 065
     Dates: start: 201703, end: 201703
  9. GABAPENTIN. [Concomitant]
     Active Substance: GABAPENTIN
     Route: 065
     Dates: start: 20140617, end: 20141106
  10. COMPLEX B [Concomitant]
     Active Substance: CALCIUM PANTOTHENATE\CYANOCOBALAMIN\NIACINAMIDE\PYRIDOXINE HYDROCHLORIDE\RIBOFLAVIN\THIAMINE MONONITRATE
     Route: 065
     Dates: start: 20121231
  11. OCRELIZUMAB [Suspect]
     Active Substance: OCRELIZUMAB
     Indication: RELAPSING-REMITTING MULTIPLE SCLEROSIS
     Dosage: FIRST DOSE ADMINISTERED AS DUAL INFUSIONS ON DAY 1 AND DAY 15 (260 ML) OF FIRST 24-WEEK CYCLE (AS PE
     Route: 042
     Dates: start: 20141106, end: 20141120
  12. OCRELIZUMAB [Suspect]
     Active Substance: OCRELIZUMAB
     Dosage: ADMINISTERED ONCE EVERY 24 WEEKS, OTHER ADMINISTRATIONS:?WEEK 48: 09/OCT/2015?WEEK 72: 28/MAR/2016?W
     Route: 042
     Dates: start: 20150427
  13. PARACETAMOL [Concomitant]
     Active Substance: ACETAMINOPHEN
     Route: 065
     Dates: start: 20131022, end: 20131023
  14. METHYLPREDNISOLONE. [Concomitant]
     Active Substance: METHYLPREDNISOLONE
     Indication: PREMEDICATION
     Dosage: PRIOR TO INFUSION TREATMENT, AS PER PROTOCOL. SUBSEQUENT DOSES:?WEEK 2: 23/NOV/2012, WEEK 24: 25/APR
     Route: 042
  15. GABAPENTIN. [Concomitant]
     Active Substance: GABAPENTIN
     Route: 065
     Dates: start: 20170330
  16. N-ACETYLCYSTEINE [Concomitant]
     Active Substance: ACETYLCYSTEINE
     Route: 065
     Dates: start: 20170330, end: 20170429
  17. PARACETAMOL [Concomitant]
     Active Substance: ACETAMINOPHEN
     Indication: PREMEDICATION
     Dosage: PRE-INFUSION TREATMENT, AS PER PROTOCOL. SUBSEQUENT DOSES:?WEEK 2: 23/NOV/2012, WEEK 24: 25/APR/2013
     Route: 048
     Dates: start: 20121108
  18. PARACETAMOL [Concomitant]
     Active Substance: ACETAMINOPHEN
     Route: 065
     Dates: start: 20121228, end: 20121229
  19. PLACEBO [Suspect]
     Active Substance: UNSPECIFIED INGREDIENT
     Indication: RELAPSING-REMITTING MULTIPLE SCLEROSIS
     Dosage: FIRST DOSE ADMINISTERED AS DUAL INFUSIONS ON DAY 1 AND DAY 15 OF FIRST 24-WEEK CYCLE (AS PER PROTOCO
     Route: 042
     Dates: start: 20121108, end: 20140326
  20. CHLORPHENAMINE [Concomitant]
     Active Substance: CHLORPHENIRAMINE MALEATE
     Indication: PREMEDICATION
     Dosage: PRE-INFUSION TREATMENT, AS PER PROTOCOL. SUBSEQUENT DOSES:?WEEK 2: 23/NOV/2012, WEEK 24: 25/APR/2013
     Route: 048
     Dates: start: 20121108
  21. PARACETAMOL [Concomitant]
     Active Substance: ACETAMINOPHEN
     Route: 065
     Dates: start: 20130425, end: 20140911
  22. GABAPENTIN. [Concomitant]
     Active Substance: GABAPENTIN
     Route: 065
     Dates: start: 201201, end: 20140616
  23. ELCAL-D FORTE [Concomitant]
     Route: 065
     Dates: start: 20131004, end: 20140616
  24. INTERFERON BETA-1A [Suspect]
     Active Substance: INTERFERON BETA-1A
     Indication: RELAPSING-REMITTING MULTIPLE SCLEROSIS
     Dosage: DOSE AS PER PROTOCOL. LAST KIT LOT RECEIVED PRIOR TO AE 14/AUG/2014- 06/SEP/2014.
     Route: 058
     Dates: start: 20121108

REACTIONS (1)
  - Pneumonia bacterial [Recovered/Resolved]

NARRATIVE: CASE EVENT DATE: 20170318
